FAERS Safety Report 9162964 (Version 2)
Quarter: 2013Q2

REPORT INFORMATION
  Report Type: Spontaneous
  Country: JP (occurrence: None)
  Receive Date: 20130227
  Receipt Date: 20130405
  Transmission Date: 20140414
  Serious: Yes (Hospitalization)
  Sender: FDA-Public Use
  Company Number: JP-20130016

PATIENT
  Age: 72 Year
  Sex: Male

DRUGS (5)
  1. LIPIODOL ULTRA FLUIDE (ETHIODIZED OIL), UNKNOWN [Suspect]
     Indication: THERAPEUTIC EMBOLISATION
     Route: 013
     Dates: start: 20100903, end: 20100903
  2. NBCA [Suspect]
     Indication: THERAPEUTIC EMBOLISATION
     Route: 013
     Dates: start: 20100903, end: 20100903
  3. PENTAGIN (PENTAZOCINE LACTATE) [Concomitant]
  4. ROPION (RIPION) (FLURBIPROFEN AXETIL) (FLURBIPROFEN AXETIL) [Concomitant]
  5. LOXOPROFEN (LOXOPROFEN SODIUM HYDRATE) [Concomitant]

REACTIONS (2)
  - Liver abscess [None]
  - Off label use [None]
